FAERS Safety Report 20877630 (Version 1)
Quarter: 2022Q2

REPORT INFORMATION
  Report Type: Spontaneous
  Country: US (occurrence: None)
  Receive Date: 20220526
  Receipt Date: 20220526
  Transmission Date: 20220721
  Serious: No
  Sender: FDA-Public Use
  Company Number: None

PATIENT
  Age: 41 Year
  Sex: Female

DRUGS (1)
  1. GILENYA [Suspect]
     Active Substance: FINGOLIMOD HYDROCHLORIDE
     Indication: Multiple sclerosis
     Dosage: 0.5MG ONCE DAILY BY MOUTH?
     Route: 048
     Dates: start: 2019

REACTIONS (3)
  - Migraine with aura [None]
  - Visual impairment [None]
  - Photophobia [None]

NARRATIVE: CASE EVENT DATE: 20220301
